FAERS Safety Report 19454430 (Version 1)
Quarter: 2021Q2

REPORT INFORMATION
  Report Type: Report from Study
  Country: IL (occurrence: IL)
  Receive Date: 20210623
  Receipt Date: 20210623
  Transmission Date: 20210717
  Serious: Yes (Life-Threatening)
  Sender: FDA-Public Use
  Company Number: IL-BAYER-2016-192923

PATIENT
  Age: 49 Year
  Sex: Female

DRUGS (3)
  1. BETAFERON [Suspect]
     Active Substance: INTERFERON BETA-1B
     Indication: MULTIPLE SCLEROSIS
     Dosage: UNK
     Dates: start: 20160831, end: 202003
  2. VIT D [VITAMIN D NOS] [Concomitant]
  3. BETMIGA [Concomitant]
     Active Substance: MIRABEGRON

REACTIONS (7)
  - Hypoaesthesia [Recovered/Resolved]
  - White blood cell count abnormal [None]
  - Acne [Recovering/Resolving]
  - Blood test abnormal [None]
  - Dysstasia [Recovered/Resolved]
  - Product dose omission in error [None]
  - Product dose omission in error [None]

NARRATIVE: CASE EVENT DATE: 2016
